FAERS Safety Report 11992966 (Version 1)
Quarter: 2016Q1

REPORT INFORMATION
  Report Type: Spontaneous
  Country: US (occurrence: US)
  Receive Date: 20160203
  Receipt Date: 20160203
  Transmission Date: 20160526
  Serious: No
  Sender: FDA-Public Use
  Company Number: US-UCBSA-2015015516

PATIENT
  Age: 26 Year

DRUGS (6)
  1. DEPAKOTE [Suspect]
     Active Substance: DIVALPROEX SODIUM
     Dosage: 2500 MG
     Dates: start: 2015
  2. TOPAMAX [Suspect]
     Active Substance: TOPIRAMATE
     Dosage: 50 MG
     Dates: start: 2015
  3. KEPPRA [Suspect]
     Active Substance: LEVETIRACETAM
     Dosage: 1500 MG
     Dates: start: 2015
  4. KEPPRA [Suspect]
     Active Substance: LEVETIRACETAM
     Indication: SEIZURE
     Dosage: 6 PILLS (3000 MG)
  5. TOPAMAX [Suspect]
     Active Substance: TOPIRAMATE
     Indication: SEIZURE
     Dosage: UNK
  6. DEPAKOTE [Suspect]
     Active Substance: DIVALPROEX SODIUM
     Indication: SEIZURE
     Dosage: 1000 MG

REACTIONS (9)
  - Confusional state [Unknown]
  - Anxiety [Unknown]
  - Balance disorder [Unknown]
  - Disturbance in attention [Unknown]
  - Hypokinesia [Unknown]
  - Restlessness [Unknown]
  - Petit mal epilepsy [Unknown]
  - Lethargy [Unknown]
  - Nausea [Unknown]

NARRATIVE: CASE EVENT DATE: 2015
